FAERS Safety Report 24752092 (Version 1)
Quarter: 2024Q4

REPORT INFORMATION
  Report Type: Spontaneous
  Country: IL (occurrence: IL)
  Receive Date: 20241219
  Receipt Date: 20241219
  Transmission Date: 20250115
  Serious: Yes (Other)
  Sender: RANBAXY
  Company Number: IL-SUN PHARMACEUTICAL INDUSTRIES LTD-2024R1-484125

PATIENT
  Age: 13 Year

DRUGS (4)
  1. CHOLECALCIFEROL [Suspect]
     Active Substance: CHOLECALCIFEROL
     Indication: Thalassaemia
     Dosage: UNK
     Route: 065
  2. DEFERASIROX [Suspect]
     Active Substance: DEFERASIROX
     Indication: Thalassaemia
     Dosage: UNK
     Route: 065
  3. DEFEROXAMINE [Suspect]
     Active Substance: DEFEROXAMINE MESYLATE
     Indication: Thalassaemia
     Dosage: UNK
     Route: 065
  4. DEFERIPRONE [Suspect]
     Active Substance: DEFERIPRONE
     Indication: Thalassaemia
     Dosage: UNK
     Route: 065

REACTIONS (1)
  - Nephrolithiasis [Unknown]
